FAERS Safety Report 5351798-X (Version None)
Quarter: 2007Q2

REPORT INFORMATION
  Report Type: 
  Country: None (occurrence: None)
  Receive Date: 20070521
  Receipt Date: 20070301
  Transmission Date: 20071010
  Serious: No
  Sender: FDA-Public Use
  Company Number: WAES 0703USA00285

PATIENT
  Age: 75 Year
  Sex: Female
  Weight: 88.4514 kg

DRUGS (8)
  1. JANUVIA [Suspect]
     Indication: DIABETES MELLITUS NON-INSULIN-DEPENDENT
     Dosage: 100 MG/DAILY/PO
     Route: 048
     Dates: start: 20070122, end: 20070219
  2. AVANDIA [Concomitant]
  3. CELEBREX [Concomitant]
  4. LASIX [Concomitant]
  5. PLAVIX [Concomitant]
  6. TENORETIC 100 [Concomitant]
  7. ASPIRIN [Concomitant]
  8. POTASSIUM (UNSPECIFIED) [Concomitant]

REACTIONS (1)
  - BLOOD GLUCOSE DECREASED [None]
